FAERS Safety Report 22339893 (Version 1)
Quarter: 2023Q2

REPORT INFORMATION
  Report Type: Report from Study
  Country: TH (occurrence: None)
  Receive Date: 20230518
  Receipt Date: 20230518
  Transmission Date: 20230721
  Serious: Yes (Death)
  Sender: FDA-Public Use
  Company Number: 2023A111888

PATIENT
  Age: 86 Year
  Sex: Female

DRUGS (11)
  1. TAGRISSO [Suspect]
     Active Substance: OSIMERTINIB
     Indication: Non-small cell lung cancer metastatic
     Route: 048
     Dates: start: 20211025
  2. SIMVASTATIN [Concomitant]
     Active Substance: SIMVASTATIN
  3. AMLODIPINE [Concomitant]
     Active Substance: AMLODIPINE BESYLATE
  4. FOLIC ACID [Concomitant]
     Active Substance: FOLIC ACID
  5. ASPIRIN [Concomitant]
     Active Substance: ASPIRIN
  6. SODIUM CHLORIDE [Concomitant]
     Active Substance: SODIUM CHLORIDE
  7. DOMPERIDONE [Concomitant]
     Active Substance: DOMPERIDONE
  8. DEXTROMETHORPHAN [Concomitant]
     Active Substance: DEXTROMETHORPHAN
  9. TIZANIDINE [Concomitant]
     Active Substance: TIZANIDINE
  10. LACTULOSE [Concomitant]
     Active Substance: LACTULOSE
  11. TRACE ELEMENT [Concomitant]

REACTIONS (1)
  - Death [Fatal]

NARRATIVE: CASE EVENT DATE: 20230101
